FAERS Safety Report 20644323 (Version 1)
Quarter: 2022Q1

REPORT INFORMATION
  Report Type: Spontaneous
  Country: IT (occurrence: IT)
  Receive Date: 20220328
  Receipt Date: 20220328
  Transmission Date: 20220423
  Serious: Yes (Hospitalization)
  Sender: FDA-Public Use
  Company Number: None

PATIENT
  Age: 69 Year
  Sex: Male

DRUGS (12)
  1. XADAGO [Suspect]
     Active Substance: SAFINAMIDE MESYLATE
     Indication: Product used for unknown indication
     Dosage: NOT PROVIDED
     Route: 048
     Dates: start: 20220101, end: 20220219
  2. RAMIPRIL [Concomitant]
     Active Substance: RAMIPRIL
     Dosage: NOT PROVIDED
  3. AMLODIPINE [Concomitant]
     Active Substance: AMLODIPINE BESYLATE
     Dosage: NOT PROVIDED
  4. OMEPRAZOLE [Concomitant]
     Active Substance: OMEPRAZOLE
     Dosage: NOT PROVIDED
  5. XANAX [Concomitant]
     Active Substance: ALPRAZOLAM
     Dosage: NOT PROVIDED
  6. FUROSEMIDE [Concomitant]
     Active Substance: FUROSEMIDE
     Dosage: NOT PROVIDED
  7. MIRTAZAPINE [Concomitant]
     Active Substance: MIRTAZAPINE
     Dosage: NOT PROVIDED
  8. ASPIRIN [Concomitant]
     Active Substance: ASPIRIN
     Dosage: NOT PROVIDED
  9. DULOXETINE [Concomitant]
     Active Substance: DULOXETINE
     Dosage: NOT PROVIDED
  10. PAROXETINE [Concomitant]
     Active Substance: PAROXETINE
     Dosage: NOT PROVIDED
  11. LEVODOPA [Concomitant]
     Active Substance: LEVODOPA
     Dosage: NOT PROVIDED
  12. BISOPROLOL [Concomitant]
     Active Substance: BISOPROLOL
     Dosage: NOT PROVIDED

REACTIONS (1)
  - Hyperkalaemia [Not Recovered/Not Resolved]

NARRATIVE: CASE EVENT DATE: 20220219
